FAERS Safety Report 8966215 (Version 2)
Quarter: 2012Q4

REPORT INFORMATION
  Report Type: Report from Study
  Country: GB (occurrence: GB)
  Receive Date: 20121214
  Receipt Date: 20121224
  Transmission Date: 20130627
  Serious: Yes (Death, Other)
  Sender: FDA-Public Use
  Company Number: GB-GENZYME-MOZO-1000791

PATIENT
  Age: 60 None
  Sex: Female
  Weight: 72.9 kg

DRUGS (4)
  1. MOZOBIL [Suspect]
     Indication: HAEMATOPOIETIC STEM CELL MOBILISATION
     Dosage: 18 mg, qd
     Route: 058
     Dates: start: 20120416, end: 20120418
  2. MOZOBIL [Suspect]
     Indication: NON-HODGKIN^S LYMPHOMA
  3. G-CSF [Suspect]
     Indication: HAEMATOPOIETIC STEM CELL MOBILISATION
     Dosage: 48000000 U, UNK
     Route: 058
     Dates: start: 20120416, end: 20120418
  4. G-CSF [Suspect]
     Indication: NON-HODGKIN^S LYMPHOMA

REACTIONS (2)
  - Complications of bone marrow transplant [Fatal]
  - Non-Hodgkin^s lymphoma recurrent [Fatal]
